FAERS Safety Report 23546379 (Version 2)
Quarter: 2025Q2

REPORT INFORMATION
  Report Type: Spontaneous
  Country: US (occurrence: US)
  Receive Date: 20240220
  Receipt Date: 20250630
  Transmission Date: 20250717
  Serious: Yes (Other)
  Sender: ABBVIE
  Company Number: US-ABBVIE-5644001

PATIENT

DRUGS (2)
  1. RINVOQ [Suspect]
     Active Substance: UPADACITINIB
     Indication: Rheumatoid arthritis
     Route: 048
  2. BYDUREON [Suspect]
     Active Substance: EXENATIDE
     Indication: Type 2 diabetes mellitus
     Route: 065

REACTIONS (5)
  - Gastrointestinal haemorrhage [Unknown]
  - Rheumatoid arthritis [Unknown]
  - Type 2 diabetes mellitus [Unknown]
  - Herpes zoster [Unknown]
  - Renal failure [Unknown]
